FAERS Safety Report 8780122 (Version 1)
Quarter: 2012Q4

REPORT INFORMATION
  Report Type: Spontaneous
  Country: US (occurrence: None)
  Receive Date: 20120831
  Receipt Date: 20120831
  Transmission Date: 20130627
  Serious: Yes (Other)
  Sender: FDA-Public Use
  Company Number: None

PATIENT
  Age: 51 Year
  Sex: Female
  Weight: 77.11 kg

DRUGS (1)
  1. VICTRELIS [Suspect]

REACTIONS (5)
  - Nausea [None]
  - Vomiting [None]
  - Neck pain [None]
  - Fatigue [None]
  - Swollen tongue [None]
